FAERS Safety Report 7551231-3 (Version None)
Quarter: 2011Q2

REPORT INFORMATION
  Report Type: 
  Country: None (occurrence: None)
  Receive Date: 20110616
  Receipt Date: 20110606
  Transmission Date: 20111010
  Serious: No
  Sender: FDA-Public Use
  Company Number: PHHY2011DE17382

PATIENT
  Sex: Female

DRUGS (1)
  1. EXTAVIA [Suspect]
     Indication: MULTIPLE SCLEROSIS
     Dosage: 250 UG, QOD
     Route: 058
     Dates: start: 20101228, end: 20110305

REACTIONS (5)
  - PANIC ATTACK [None]
  - TREMOR [None]
  - HEART RATE INCREASED [None]
  - ANXIETY [None]
  - NAUSEA [None]
